FAERS Safety Report 13181135 (Version 1)
Quarter: 2017Q1

REPORT INFORMATION
  Report Type: Spontaneous
  Country: US (occurrence: US)
  Receive Date: 20170202
  Receipt Date: 20170202
  Transmission Date: 20170428
  Serious: No
  Sender: FDA-Public Use
  Company Number: US-SMITH AND NEPHEW, INC-2016SMT00900

PATIENT
  Age: 78 Year
  Sex: Male
  Weight: 97.52 kg

DRUGS (12)
  1. LASIX [Concomitant]
     Active Substance: FUROSEMIDE
     Dosage: UNK, 1X/DAY
  2. APIDRA [Concomitant]
     Active Substance: INSULIN GLULISINE
     Dosage: UNK UNK, 2X/DAY
  3. SILVADENE [Suspect]
     Active Substance: SILVER SULFADIAZINE
     Indication: WOUND TREATMENT
     Dosage: UNK
     Dates: start: 20160817
  4. REGRANEX [Suspect]
     Active Substance: BECAPLERMIN
     Indication: WOUND
     Dosage: UNK, 1X/DAY
     Route: 061
     Dates: start: 20160916
  5. APIDRA [Concomitant]
     Active Substance: INSULIN GLULISINE
     Dosage: UNK, 3X/DAY
  6. PLAVIX [Concomitant]
     Active Substance: CLOPIDOGREL BISULFATE
     Dosage: UNK, 1X/DAY
  7. LANTUS [Concomitant]
     Active Substance: INSULIN GLARGINE
  8. ASPIRIN. [Concomitant]
     Active Substance: ASPIRIN
  9. PRAVACOL [Concomitant]
     Active Substance: PRAVASTATIN SODIUM
  10. MULTIVITAMINS [Concomitant]
     Active Substance: VITAMINS
     Dosage: UNK, 1X/DAY
  11. CELEXA [Concomitant]
     Active Substance: CITALOPRAM HYDROBROMIDE
  12. VITAMIN C [Concomitant]
     Active Substance: ASCORBIC ACID
     Dosage: UNK, 2X/DAY

REACTIONS (2)
  - Drug effect delayed [Not Recovered/Not Resolved]
  - Application site discolouration [Recovering/Resolving]

NARRATIVE: CASE EVENT DATE: 20160916
